FAERS Safety Report 5425205-2 (Version None)
Quarter: 2007Q3

REPORT INFORMATION
  Report Type: 
  Country: None (occurrence: None)
  Receive Date: 20070824
  Receipt Date: 20070820
  Transmission Date: 20080115
  Serious: Yes (Other)
  Sender: FDA-Public Use
  Company Number: B0484494A

PATIENT
  Age: 37 Year
  Sex: Female

DRUGS (1)
  1. NIQUITIN CQ PATCH, CLEAR [Suspect]
     Indication: DRUG USE FOR UNKNOWN INDICATION
     Route: 062
     Dates: start: 20070816

REACTIONS (5)
  - DIZZINESS [None]
  - MALAISE [None]
  - NERVOUSNESS [None]
  - SYNCOPE [None]
  - VOMITING [None]
